FAERS Safety Report 8429462-X (Version None)
Quarter: 2012Q2

REPORT INFORMATION
  Report Type: 
  Country: None (occurrence: None)
  Receive Date: 20120517
  Receipt Date: 20120510
  Transmission Date: 20120825
  Serious: Yes (Other)
  Sender: FDA-Public Use
  Company Number: 2011028550

PATIENT
  Age: 55 Year
  Sex: Female
  Weight: 89.3586 kg

DRUGS (29)
  1. HIZENTRA [Suspect]
  2. METHOTREXATE [Concomitant]
  3. RELAFEN [Concomitant]
  4. THIAMINE HCL [Concomitant]
  5. TRIGLIDE [Concomitant]
  6. MESTINON [Concomitant]
  7. DIPHENHYDRAMINE HCL [Concomitant]
  8. SO-ENZYME Q-10 (UBIDECARENONE) [Concomitant]
  9. KAPIDEX (DRUGS FOR FUNCTIONAL GASTROINTEST. DISORDERS) [Concomitant]
  10. HIZENTRA [Suspect]
  11. HIZENTRA [Suspect]
     Indication: IMMUNODEFICIENCY COMMON VARIABLE
     Dosage: 12 G 1X/WEEK, 60 ML OVER 1-2 HOURS, SUBCUTANEOUS, (14 G 1X/WEEK, 2 GM 10 ML VIAL; 70 ML IN 4 SITES H
     Route: 058
     Dates: start: 20101018
  12. HIZENTRA [Suspect]
     Indication: IMMUNODEFICIENCY COMMON VARIABLE
     Dosage: 12 G 1X/WEEK, 60 ML OVER 1-2 HOURS, SUBCUTANEOUS, (14 G 1X/WEEK, 2 GM 10 ML VIAL; 70 ML IN 4 SITES H
     Route: 058
     Dates: start: 20110207
  13. HIZENTRA [Suspect]
     Indication: IMMUNODEFICIENCY COMMON VARIABLE
     Dosage: 12 G 1X/WEEK, 60 ML OVER 1-2 HOURS, SUBCUTANEOUS, (14 G 1X/WEEK, 2 GM 10 ML VIAL; 70 ML IN 4 SITES H
     Route: 058
     Dates: start: 20120430, end: 20120507
  14. HIZENTRA [Suspect]
  15. PREDNISONE TAB [Concomitant]
  16. HIZENTRA [Suspect]
  17. NASONEX [Concomitant]
  18. XOPENEX [Concomitant]
  19. L-CARNITINE (LEVOCARNITINE) [Concomitant]
  20. XANAX [Concomitant]
  21. VENLAFAXINE HCL [Concomitant]
  22. PACERONE [Concomitant]
  23. HIZENTRA [Suspect]
  24. HIZENTRA [Suspect]
  25. PYRIDIUM (PHENAZOPYRIDINE HYDROCHLORIDE) [Concomitant]
  26. LIDOCAINE/PRILOCAINE (EMLA /00675501/) [Concomitant]
  27. SODIUM BICARBONATE IN PLASTIC CONTAINER [Concomitant]
  28. METOPROLOL TARTRATE [Concomitant]
  29. RIBOFLAVIN CAP [Concomitant]

REACTIONS (8)
  - RESPIRATORY TRACT INFECTION [None]
  - URINARY TRACT INFECTION [None]
  - ASTHENIA [None]
  - HYPERHIDROSIS [None]
  - FLUSHING [None]
  - DYSPNOEA [None]
  - FATIGUE [None]
  - MALAISE [None]
